FAERS Safety Report 6152015-3 (Version None)
Quarter: 2009Q2

REPORT INFORMATION
  Report Type: 
  Country: None (occurrence: None)
  Receive Date: 20090410
  Receipt Date: 20090401
  Transmission Date: 20091009
  Serious: Yes (Other)
  Sender: FDA-Public Use
  Company Number: PHHY2009GB04836

PATIENT
  Sex: Female

DRUGS (1)
  1. ESTRADERM [Suspect]
     Route: 062

REACTIONS (7)
  - AGGRESSION [None]
  - AGITATION [None]
  - HYPERSOMNIA [None]
  - ILLOGICAL THINKING [None]
  - INSOMNIA [None]
  - NEUROSIS [None]
  - PSYCHOTIC DISORDER [None]
